FAERS Safety Report 9301769 (Version 1)
Quarter: 2013Q2

REPORT INFORMATION
  Report Type: Spontaneous
  Country: US (occurrence: US)
  Receive Date: 20130521
  Receipt Date: 20130521
  Transmission Date: 20140414
  Serious: No
  Sender: FDA-Public Use
  Company Number: US-TEVA-337210USA

PATIENT
  Sex: Male

DRUGS (2)
  1. FENTORA [Suspect]
     Indication: CANCER PAIN
     Dosage: 1 TAB/WK- PAIN A MAX OF 4-6/MTH
     Route: 002
     Dates: start: 2010, end: 201204
  2. VICODIN [Concomitant]
     Indication: CANCER PAIN
     Dosage: 5MG/500MG
     Route: 048
     Dates: start: 2007

REACTIONS (2)
  - Pain [Not Recovered/Not Resolved]
  - Drug prescribing error [Unknown]
